FAERS Safety Report 9441179 (Version 1)
Quarter: 2013Q3

REPORT INFORMATION
  Report Type: Report from Study
  Country: US (occurrence: US)
  Receive Date: 20130805
  Receipt Date: 20130805
  Transmission Date: 20140515
  Serious: Yes (Hospitalization)
  Sender: FDA-Public Use
  Company Number: US-ABBOTT-13P-163-1125637-00

PATIENT
  Sex: Female
  Weight: 73.55 kg

DRUGS (10)
  1. HUMIRA [Suspect]
     Indication: CROHN^S DISEASE
     Dosage: ONE DOSE
     Route: 058
     Dates: start: 201212, end: 201212
  2. HUMIRA [Suspect]
     Route: 058
  3. HUMIRA [Suspect]
     Route: 058
     Dates: start: 201304
  4. HUMIRA [Suspect]
     Route: 058
     Dates: start: 201304, end: 20130531
  5. IMURAN [Suspect]
     Indication: CROHN^S DISEASE
     Dates: start: 201305
  6. RIFAMPIN [Concomitant]
     Indication: PRODUCT USED FOR UNKNOWN INDICATION
  7. VITAMIN D [Concomitant]
     Indication: VITAMIN SUPPLEMENTATION
  8. VITAMIN B6 [Concomitant]
     Indication: PRODUCT USED FOR UNKNOWN INDICATION
  9. VITAMIN E [Concomitant]
     Indication: VITAMIN SUPPLEMENTATION
  10. VITAMIN B [Concomitant]
     Indication: VITAMIN SUPPLEMENTATION

REACTIONS (9)
  - Wound [Recovered/Resolved]
  - Acne [Recovered/Resolved]
  - Swelling face [Recovered/Resolved]
  - Staphylococcal infection [Recovered/Resolved]
  - Scar [Not Recovered/Not Resolved]
  - Crohn^s disease [Not Recovered/Not Resolved]
  - Arthralgia [Not Recovered/Not Resolved]
  - Rheumatoid arthritis [Recovered/Resolved with Sequelae]
  - Crohn^s disease [Recovered/Resolved]
